FAERS Safety Report 8126524-1 (Version None)
Quarter: 2012Q1

REPORT INFORMATION
  Report Type: 
  Country: None (occurrence: None)
  Receive Date: 20120210
  Receipt Date: 20120202
  Transmission Date: 20120608
  Serious: Yes (Hospitalization)
  Sender: FDA-Public Use
  Company Number: DE-AMGEN-DEUSP2012008006

PATIENT
  Age: 64 Year
  Sex: Female

DRUGS (5)
  1. CELEBREX [Concomitant]
     Dosage: 200 MG, UNK
  2. CALCIGEN D [Concomitant]
     Dosage: 600 MG, UNK
  3. ENBREL [Suspect]
     Indication: RHEUMATOID ARTHRITIS
     Dosage: 50 MG, WEEKLY
     Dates: start: 20090101
  4. OXYCODONE HCL [Concomitant]
     Dosage: 20 MG, UNK
  5. OMEPRAZOLE [Concomitant]
     Dosage: 40 MG, UNK

REACTIONS (3)
  - HYPERTENSION [None]
  - MYOCARDIAL INFARCTION [None]
  - INFECTION [None]
